FAERS Safety Report 13793293 (Version 1)
Quarter: 2017Q3

REPORT INFORMATION
  Report Type: Spontaneous
  Country: US (occurrence: US)
  Receive Date: 20170726
  Receipt Date: 20170726
  Transmission Date: 20171127
  Serious: No
  Sender: FDA-Public Use
  Company Number: US-MYLANLABS-2017M1017243

PATIENT
  Sex: Female

DRUGS (2)
  1. DICYCLOVERINE [Suspect]
     Active Substance: DICYCLOMINE HYDROCHLORIDE
     Indication: FUNCTIONAL GASTROINTESTINAL DISORDER
     Dosage: UNK
     Dates: start: 2016, end: 2016
  2. CLONIDINE. [Suspect]
     Active Substance: CLONIDINE
     Indication: HYPERTENSION
     Dosage: UNK

REACTIONS (3)
  - Reaction to excipient [Not Recovered/Not Resolved]
  - Skin discolouration [Not Recovered/Not Resolved]
  - Dry skin [Not Recovered/Not Resolved]

NARRATIVE: CASE EVENT DATE: 2016
